FAERS Safety Report 8959270 (Version 1)
Quarter: 2012Q4

REPORT INFORMATION
  Report Type: Spontaneous
  Country: US (occurrence: None)
  Receive Date: 20121128
  Receipt Date: 20121128
  Transmission Date: 20130627
  Serious: Yes (Hospitalization, Other)
  Sender: FDA-Public Use
  Company Number: AUR-APL-2012-04994

PATIENT
  Age: 42 Year
  Sex: Female

DRUGS (4)
  1. QUETIAPINE [Suspect]
     Indication: DEPRESSIVE DISORDER
  2. CITALOPRAM (CITALOPRAM) [Suspect]
  3. ONDANSETRON [Suspect]
     Dosage: single dose
  4. ADDERALL [Suspect]

REACTIONS (6)
  - Facial bones fracture [None]
  - Blood pressure fluctuation [None]
  - Unresponsive to stimuli [None]
  - Neuromyopathy [None]
  - Autonomic nervous system imbalance [None]
  - Mental status changes [None]
